FAERS Safety Report 25854909 (Version 2)
Quarter: 2025Q4

REPORT INFORMATION
  Report Type: Report from Study
  Country: US (occurrence: US)
  Receive Date: 20250927
  Receipt Date: 20251119
  Transmission Date: 20260118
  Serious: Yes (Hospitalization)
  Sender: ABBVIE
  Company Number: US-ABBVIE-6465032

PATIENT
  Age: 66 Year
  Sex: Female

DRUGS (2)
  1. SKYRIZI [Suspect]
     Active Substance: RISANKIZUMAB-RZAA
     Indication: Psoriasis
     Dosage: TIME INTERVAL: TOTAL: WEEK 0, FORM STRENGTH: 150 MG/ML
     Route: 058
     Dates: start: 202506, end: 202506
  2. SKYRIZI [Suspect]
     Active Substance: RISANKIZUMAB-RZAA
     Dosage: TIME INTERVAL: TOTAL: WEEK 0, FORM STRENGTH: 150 MG/ML
     Route: 058
     Dates: start: 20250530, end: 20250530

REACTIONS (9)
  - Staphylococcal infection [Not Recovered/Not Resolved]
  - Erythema [Recovering/Resolving]
  - Peripheral swelling [Recovering/Resolving]
  - Skin discolouration [Not Recovered/Not Resolved]
  - Insomnia [Unknown]
  - Psoriasis [Unknown]
  - Pain [Unknown]
  - Weight increased [Unknown]
  - Fungal infection [Not Recovered/Not Resolved]

NARRATIVE: CASE EVENT DATE: 20250101
